FAERS Safety Report 7241006-7 (Version None)
Quarter: 2011Q1

REPORT INFORMATION
  Report Type: 
  Country: None (occurrence: None)
  Receive Date: 20110120
  Receipt Date: 20110120
  Transmission Date: 20110831
  Serious: Yes (Other)
  Sender: FDA-Public Use
  Company Number: None

PATIENT

DRUGS (3)
  1. LAMICTAL [Concomitant]
  2. VICTOZA [Suspect]
     Indication: DIABETES MELLITUS
     Dosage: 0.6 BID INJECTION
  3. HYDROCHLOROTHIAZIDE [Concomitant]

REACTIONS (3)
  - DISEASE RECURRENCE [None]
  - DEPRESSION [None]
  - SUICIDAL BEHAVIOUR [None]
